FAERS Safety Report 9444677 (Version 2)
Quarter: 2013Q4

REPORT INFORMATION
  Report Type: Spontaneous
  Country: US (occurrence: US)
  Receive Date: 20130807
  Receipt Date: 20131220
  Transmission Date: 20140711
  Serious: Yes (Hospitalization, Disabling)
  Sender: FDA-Public Use
  Company Number: US-BAYER-2013-095191

PATIENT
  Age: 36 Year
  Sex: Female
  Weight: 90.7 kg

DRUGS (9)
  1. YAZ [Suspect]
     Indication: PREMENSTRUAL SYNDROME
     Dosage: UNK
     Route: 048
     Dates: start: 200704, end: 200705
  2. TYLENOL REGULAR [Concomitant]
     Dosage: UNK
  3. FEXOFENADINE [Concomitant]
     Dosage: 180 MG, UNK
  4. RHINOCORT [Concomitant]
     Route: 045
  5. PROVENTIL [Concomitant]
  6. AMOXICILLIN W/CLAVULANIC ACID [Concomitant]
     Dosage: 875 MG, UNK
  7. HYDROCODONE W/PARACETAMOL [Concomitant]
     Dosage: UNK
  8. ALPHAGAN [Concomitant]
     Dosage: 0.15 %, UNK
  9. TIMOLOL [Concomitant]
     Dosage: 0.5 %, UNK

REACTIONS (13)
  - Pulmonary embolism [None]
  - Pain [None]
  - Injury [None]
  - General physical health deterioration [None]
  - Anxiety [None]
  - Emotional distress [None]
  - Anhedonia [None]
  - Neck pain [None]
  - Musculoskeletal pain [None]
  - Dyspnoea [None]
  - Hyperhidrosis [None]
  - Insomnia [None]
  - Back pain [None]
